FAERS Safety Report 6217545-4 (Version None)
Quarter: 2009Q2

REPORT INFORMATION
  Report Type: 
  Country: None (occurrence: None)
  Receive Date: 20090608
  Receipt Date: 20090205
  Transmission Date: 20091009
  Serious: Yes (Other)
  Sender: FDA-Public Use
  Company Number: A0767156A

PATIENT
  Age: 42 Year
  Sex: Female

DRUGS (5)
  1. BUPROPION HYDROCHLORIDE [Suspect]
     Dosage: 300MG PER DAY
     Route: 048
     Dates: start: 20080101, end: 20080101
  2. LAMICTAL [Concomitant]
  3. ADVAIR HFA [Concomitant]
  4. VERAMYST [Concomitant]
  5. PREVACID [Concomitant]

REACTIONS (1)
  - AGGRESSION [None]
